FAERS Safety Report 9069974 (Version 1)
Quarter: 2013Q1

REPORT INFORMATION
  Report Type: Report from Study
  Country: US (occurrence: US)
  Receive Date: 20130129
  Receipt Date: 20130129
  Transmission Date: 20140127
  Serious: No
  Sender: FDA-Public Use
  Company Number: US-ABBOTT-12P-163-0936537-00

PATIENT
  Age: 48 Year
  Sex: Female

DRUGS (8)
  1. HUMIRA 40 MG/0.8 ML PEN [Suspect]
     Indication: PSORIASIS
     Dates: start: 200904
  2. HUMIRA 40 MG/ 0.8 ML PRE-FILLED SYRINGE [Suspect]
     Indication: PSORIASIS
  3. DILTIAZEM [Concomitant]
     Indication: HYPERTENSION
     Dosage: 100 MG DAILY
  4. TRIAM/HCTZ [Concomitant]
     Indication: HYPERTENSION
     Dosage: 37.5 MG DAILY
  5. LORATADINE [Concomitant]
     Indication: HYPERSENSITIVITY
     Dosage: 10 MG DAILY
  6. GABAPENTIN [Concomitant]
     Indication: ARTHRITIS
     Dosage: 100MG DAILY
  7. PREDNISONE [Concomitant]
     Indication: ARTHRITIS
     Dosage: 5MG DAILY
  8. CYMBALTA [Concomitant]
     Indication: DEPRESSION
     Dosage: 50MG DAILY

REACTIONS (4)
  - Blood cholesterol abnormal [Unknown]
  - Injection site pain [Not Recovered/Not Resolved]
  - Pain [Not Recovered/Not Resolved]
  - Insomnia [Not Recovered/Not Resolved]
